FAERS Safety Report 17493251 (Version 1)
Quarter: 2020Q1

REPORT INFORMATION
  Report Type: Spontaneous
  Country: US (occurrence: US)
  Receive Date: 20200304
  Receipt Date: 20200304
  Transmission Date: 20200409
  Serious: Yes (Other)
  Sender: FDA-Public Use
  Company Number: US-DRREDDYS-USA/USA/20/0120284

PATIENT
  Age: 53 Year
  Sex: Female

DRUGS (2)
  1. GEMCITABINE. [Suspect]
     Active Substance: GEMCITABINE
     Indication: METASTASES TO LYMPH NODES
  2. GEMCITABINE. [Suspect]
     Active Substance: GEMCITABINE
     Indication: SIGNET-RING CELL CARCINOMA
     Dosage: SINGLE-AGENT GEMCITABINE 1000 MG/ M2 ON DAY 1, 8, AND 15 OF A 28-DAY CYCLE
     Dates: start: 2010

REACTIONS (1)
  - Cytopenia [Unknown]
